FAERS Safety Report 8283984-3 (Version None)
Quarter: 2012Q2

REPORT INFORMATION
  Report Type: 
  Country: None (occurrence: None)
  Receive Date: 20120413
  Receipt Date: 20111010
  Transmission Date: 20120825
  Serious: No
  Sender: FDA-Public Use
  Company Number: US-ASTRAZENECA-2011SE60949

PATIENT
  Age: 62 Year
  Sex: Female

DRUGS (16)
  1. TOPROL-XL [Suspect]
     Route: 048
  2. PERIDEX [Concomitant]
  3. ENALAPRIL MALEATE [Concomitant]
  4. CLOBETASOL PROPIONATE [Concomitant]
  5. LIDOCAINE [Suspect]
     Indication: PAIN
     Dosage: EVERY 4 HOURS PRN
     Route: 065
  6. TRETINOIN [Concomitant]
  7. LISINOPRIL AND HYDROCHLOROTHIAZIDE [Suspect]
     Dosage: 20/12.5 MG
     Route: 048
  8. IBUPROFEN [Concomitant]
  9. WELLBUTRIN [Concomitant]
     Indication: DEPRESSION
  10. LIDOCAINE [Suspect]
     Indication: ORAL DISORDER
     Dosage: EVERY 4 HOURS PRN
     Route: 065
  11. BACLOFEN [Concomitant]
  12. AMLODIPINE [Concomitant]
  13. NEXIUM [Suspect]
     Route: 048
  14. PROTOPIC [Concomitant]
  15. ASPIRIN [Concomitant]
  16. DESONIDE [Concomitant]
     Indication: SKIN LESION

REACTIONS (3)
  - RHINITIS ALLERGIC [None]
  - BRONCHITIS [None]
  - BRONCHITIS CHRONIC [None]
